FAERS Safety Report 18202237 (Version 1)
Quarter: 2020Q3

REPORT INFORMATION
  Report Type: Report from Study
  Country: None (occurrence: TR)
  Receive Date: 20200827
  Receipt Date: 20200827
  Transmission Date: 20201103
  Serious: Yes (Death, Other)
  Sender: FDA-Public Use
  Company Number: TR-ABBVIE-20K-161-3515506-00

PATIENT
  Age: 74 Year
  Sex: Female
  Weight: 60 kg

DRUGS (6)
  1. DUODOPA [Suspect]
     Active Substance: CARBIDOPA\LEVODOPA
     Indication: PARKINSON^S DISEASE
     Dosage: MORNING DOSE (ML): 6.30 CONTINUOUS DOSE (ML): 5.30 EXTRA DOSE (ML): 2.00
     Route: 050
     Dates: start: 20190617
  2. AZIPAR [Concomitant]
     Indication: PARKINSON^S DISEASE
     Route: 048
     Dates: start: 2006
  3. DILTIZEM [Concomitant]
     Indication: HYPERTENSION
     Route: 048
     Dates: start: 2010
  4. DUODOPA [Suspect]
     Active Substance: CARBIDOPA\LEVODOPA
  5. PANKREOFLAT [Concomitant]
     Indication: DYSPEPSIA
     Route: 048
     Dates: start: 2010
  6. CIPRALEX [Concomitant]
     Active Substance: ESCITALOPRAM OXALATE
     Indication: DEPRESSION
     Route: 048
     Dates: start: 2008

REACTIONS (4)
  - Micturition frequency decreased [Not Recovered/Not Resolved]
  - Femur fracture [Unknown]
  - Cardiac arrest [Fatal]
  - Fall [Recovered/Resolved]

NARRATIVE: CASE EVENT DATE: 20200815
